FAERS Safety Report 6942950-8 (Version None)
Quarter: 2010Q3

REPORT INFORMATION
  Report Type: 
  Country: None (occurrence: None)
  Receive Date: 20100825
  Receipt Date: 20100825
  Transmission Date: 20110219
  Serious: Yes (Other)
  Sender: FDA-Public Use
  Company Number: None

PATIENT
  Age: 39 Year
  Sex: Male
  Weight: 79.3795 kg

DRUGS (1)
  1. BC FAST PAIN RELIEF 2 ANALGESIC POWDERS BC [Suspect]
     Dosage: 1 PACKAGE EVERY 4 HOURS
     Dates: start: 20100823, end: 20100824

REACTIONS (3)
  - PRODUCT LABEL ISSUE [None]
  - PRURITUS [None]
  - VOMITING [None]
